FAERS Safety Report 8774621 (Version 3)
Quarter: 2013Q1

REPORT INFORMATION
  Report Type: Spontaneous
  Country: US (occurrence: US)
  Receive Date: 20120907
  Receipt Date: 20130119
  Transmission Date: 20140127
  Serious: Yes (Hospitalization)
  Sender: FDA-Public Use
  Company Number: US-009507513-1209USA001354

PATIENT
  Age: 79 Year
  Sex: Female

DRUGS (3)
  1. JANUMET [Suspect]
     Indication: DIABETES MELLITUS
     Dosage: 1000MG/50MG, BID
     Route: 048
     Dates: start: 2011, end: 20120807
  2. LISINOPRIL [Concomitant]
  3. ATENOLOL (+) CHLORTHALIDONE [Concomitant]

REACTIONS (1)
  - Pancreatitis [Recovering/Resolving]
